FAERS Safety Report 13056830 (Version 1)
Quarter: 2016Q4

REPORT INFORMATION
  Report Type: Spontaneous
  Country: US (occurrence: US)
  Receive Date: 20161222
  Receipt Date: 20161222
  Transmission Date: 20170207
  Serious: No
  Sender: FDA-Public Use
  Company Number: US-BIOMARINAP-US-2016-110207

PATIENT
  Age: 18 Year
  Sex: Male
  Weight: 22 kg

DRUGS (1)
  1. NAGLAZYME [Suspect]
     Active Substance: GALSULFASE
     Indication: MUCOPOLYSACCHARIDOSIS VI
     Dosage: 25 MG, QW
     Route: 042
     Dates: start: 20071130

REACTIONS (4)
  - Headache [Unknown]
  - Middle ear effusion [Unknown]
  - Vomiting [Unknown]
  - Nausea [Unknown]

NARRATIVE: CASE EVENT DATE: 20160617
